FAERS Safety Report 9775541 (Version 2)
Quarter: 2014Q1

REPORT INFORMATION
  Report Type: Spontaneous
  Country: US (occurrence: US)
  Receive Date: 20131220
  Receipt Date: 20140318
  Transmission Date: 20141002
  Serious: No
  Sender: FDA-Public Use
  Company Number: US-GALDERMA-US13003656

PATIENT
  Age: 62 Year
  Sex: Female

DRUGS (7)
  1. MIRVASO (BRIMONIDINE) TOPICAL GEL, 0.33% [Suspect]
     Indication: ROSACEA
     Dosage: 0.33%
     Route: 061
     Dates: start: 20131108, end: 20131115
  2. DORYX [Suspect]
     Indication: ROSACEA
     Dosage: 200 MG
     Route: 048
     Dates: start: 20131108, end: 20131115
  3. SEROQUEL (QUETIAPINE FUMARATE) [Concomitant]
     Indication: DEPRESSION
     Dosage: 200 MG
     Route: 048
  4. WELLBUTRIN (BUPROPION) [Concomitant]
     Indication: DEPRESSION
     Dosage: 200 MG
     Route: 048
  5. PRILOSEC (OMEPRAZOLE) [Concomitant]
     Indication: GASTROOESOPHAGEAL REFLUX DISEASE
     Dosage: 20 MG
     Route: 048
  6. DOVE SOAP [Concomitant]
     Indication: THERAPEUTIC SKIN CARE TOPICAL
     Route: 061
  7. CERAVE CLEANSER [Concomitant]
     Indication: THERAPEUTIC SKIN CARE TOPICAL
     Route: 061

REACTIONS (5)
  - Condition aggravated [Recovered/Resolved]
  - Emotional distress [Recovered/Resolved]
  - Rash macular [Recovered/Resolved]
  - Erythema [Recovered/Resolved]
  - Off label use [Recovered/Resolved]
